FAERS Safety Report 7904873-7 (Version None)
Quarter: 2011Q4

REPORT INFORMATION
  Report Type: 
  Country: None (occurrence: None)
  Receive Date: 20111109
  Receipt Date: 20111031
  Transmission Date: 20120403
  Serious: Yes (Other)
  Sender: FDA-Public Use
  Company Number: PHEH2011US08535

PATIENT
  Sex: Male

DRUGS (2)
  1. AFINITOR [Suspect]
     Indication: RENAL CANCER
     Dosage: 10 MG, QD
     Route: 048
     Dates: start: 20111010
  2. AFINITOR [Suspect]
     Dosage: 10 MG, QD
     Route: 048

REACTIONS (3)
  - ABDOMINAL PAIN [None]
  - CONSTIPATION [None]
  - INTESTINAL PERFORATION [None]
